FAERS Safety Report 10058168 (Version 2)
Quarter: 2014Q2

REPORT INFORMATION
  Report Type: Spontaneous
  Country: US (occurrence: None)
  Receive Date: 20140402
  Receipt Date: 20140410
  Transmission Date: 20141212
  Serious: No
  Sender: FDA-Public Use
  Company Number: PI-10203

PATIENT
  Age: 1 Day
  Sex: Male

DRUGS (1)
  1. CHLORAPREP  (2%CHG/70%IPA) [Suspect]
     Indication: PREOPERATIVE CARE
     Dosage: PATIENT INTENTIFIER: 24 WKS GESTATION
     Route: 061
     Dates: start: 20131212

REACTIONS (2)
  - Application site discolouration [None]
  - Chemical burn of skin [None]
